FAERS Safety Report 9846438 (Version 2)
Quarter: 2014Q1

REPORT INFORMATION
  Report Type: Spontaneous
  Country: US (occurrence: US)
  Receive Date: 20140127
  Receipt Date: 20140228
  Transmission Date: 20141002
  Serious: No
  Sender: FDA-Public Use
  Company Number: US-009507513-1401USA011364

PATIENT
  Age: 71 Year
  Sex: Female
  Weight: 81.63 kg

DRUGS (3)
  1. OXYTROL FOR WOMEN [Suspect]
     Indication: POLLAKIURIA
     Dosage: UNK, UNKNOWN
     Route: 062
     Dates: start: 20140106, end: 20140118
  2. VICTOZA [Concomitant]
     Indication: DIABETES MELLITUS
     Dosage: UNK, UNKNOWN
  3. METFORMIN [Concomitant]
     Indication: DIABETES MELLITUS
     Dosage: UNK, UNKNOWN

REACTIONS (3)
  - Drug ineffective [Unknown]
  - Drug effect delayed [Unknown]
  - Product adhesion issue [Unknown]
